FAERS Safety Report 17360595 (Version 1)
Quarter: 2020Q1

REPORT INFORMATION
  Report Type: Spontaneous
  Country: CN (occurrence: CN)
  Receive Date: 20200203
  Receipt Date: 20200203
  Transmission Date: 20200409
  Serious: Yes (Other)
  Sender: FDA-Public Use
  Company Number: CN-BAYER-2020-012517

PATIENT
  Age: 54 Year
  Sex: Female
  Weight: 66 kg

DRUGS (1)
  1. AVELOX [Suspect]
     Active Substance: MOXIFLOXACIN HYDROCHLORIDE
     Indication: URINARY TRACT INFECTION
     Dosage: 0.4 G, QD
     Route: 048
     Dates: start: 20191127, end: 20191128

REACTIONS (10)
  - Altered state of consciousness [Recovered/Resolved]
  - Off label use [None]
  - Product use in unapproved indication [None]
  - Subdural haematoma [None]
  - Heart rate increased [None]
  - Contusion [None]
  - Head discomfort [None]
  - Seizure [Recovered/Resolved]
  - Fall [Recovered/Resolved]
  - Blood pressure increased [None]

NARRATIVE: CASE EVENT DATE: 20191127
